FAERS Safety Report 8592155-2 (Version None)
Quarter: 2012Q3

REPORT INFORMATION
  Report Type: 
  Country: None (occurrence: None)
  Receive Date: 20120814
  Receipt Date: 20120802
  Transmission Date: 20120928
  Serious: Yes (Other)
  Sender: FDA-Public Use
  Company Number: DE-ELI_LILLY_AND_COMPANY-DE201208000543

PATIENT

DRUGS (4)
  1. CYMBALTA [Suspect]
     Indication: DEPRESSION
     Dosage: 60 MG, UNK
     Route: 064
  2. CYMBALTA [Suspect]
     Dosage: 60 MG, UNK
     Route: 064
  3. CYMBALTA [Suspect]
     Dosage: 30 MG, UNK
     Route: 064
  4. CYMBALTA [Suspect]
     Dosage: 30 MG, UNK
     Route: 064

REACTIONS (5)
  - PREMATURE BABY [None]
  - HYPERBILIRUBINAEMIA NEONATAL [None]
  - FOETAL EXPOSURE DURING PREGNANCY [None]
  - MATERNAL DRUGS AFFECTING FOETUS [None]
  - PERSISTENT FOETAL CIRCULATION [None]
